FAERS Safety Report 5238022-3 (Version None)
Quarter: 2007Q1

REPORT INFORMATION
  Report Type: 
  Country: None (occurrence: None)
  Receive Date: 20070214
  Receipt Date: 20070124
  Transmission Date: 20070707
  Serious: Yes (Other)
  Sender: FDA-Public Use
  Company Number: CA-PFIZER INC-2007010916

PATIENT
  Age: 43 Year
  Sex: Male

DRUGS (2)
  1. CELEBREX [Suspect]
     Indication: ANKYLOSING SPONDYLITIS
  2. ALL OTHER THERAPEUTIC PRODUCTS [Concomitant]
     Indication: IRIDOCYCLITIS
     Route: 061

REACTIONS (1)
  - OPTIC ISCHAEMIC NEUROPATHY [None]
